FAERS Safety Report 13437387 (Version 1)
Quarter: 2017Q2

REPORT INFORMATION
  Report Type: Spontaneous
  Country: FR (occurrence: FR)
  Receive Date: 20170413
  Receipt Date: 20170413
  Transmission Date: 20170830
  Serious: Yes (Hospitalization, Other)
  Sender: FDA-Public Use
  Company Number: FR-TELIGENT, INC-IGIL20170144

PATIENT
  Age: 58 Year
  Sex: Male

DRUGS (13)
  1. LOVENOX [Concomitant]
     Active Substance: ENOXAPARIN SODIUM
     Route: 065
     Dates: start: 201702
  2. PERINDOPRIL [Concomitant]
     Active Substance: PERINDOPRIL
     Indication: PRODUCT USED FOR UNKNOWN INDICATION
     Route: 065
  3. NORSET [Concomitant]
     Active Substance: MIRTAZAPINE
     Indication: PRODUCT USED FOR UNKNOWN INDICATION
     Route: 065
     Dates: start: 20161228
  4. CEFTAZIDIME. [Suspect]
     Active Substance: CEFTAZIDIME
     Indication: OSTEITIS
     Route: 065
     Dates: start: 20170209, end: 20170302
  5. RISPERDAL [Concomitant]
     Active Substance: RISPERIDONE
     Indication: PRODUCT USED FOR UNKNOWN INDICATION
     Route: 065
     Dates: start: 20161228
  6. INEXIUM [Concomitant]
     Active Substance: ESOMEPRAZOLE
     Indication: PRODUCT USED FOR UNKNOWN INDICATION
     Route: 065
     Dates: start: 201612
  7. KARDEGIC [Concomitant]
     Active Substance: ASPIRIN LYSINE
     Indication: PRODUCT USED FOR UNKNOWN INDICATION
     Route: 065
     Dates: start: 201612
  8. BACTRIM [Concomitant]
     Active Substance: SULFAMETHOXAZOLE\TRIMETHOPRIM
     Indication: OSTEITIS
     Route: 065
     Dates: start: 20170209
  9. ILOMEDINE [Concomitant]
     Active Substance: ILOPROST TROMETHAMINE
     Indication: PERIPHERAL ISCHAEMIA
     Route: 065
     Dates: start: 20161223, end: 20161227
  10. VANCOMYCINE [Concomitant]
     Active Substance: VANCOMYCIN
     Indication: OSTEITIS
     Route: 065
     Dates: start: 20170209
  11. LOVENOX [Concomitant]
     Active Substance: ENOXAPARIN SODIUM
     Indication: PRODUCT USED FOR UNKNOWN INDICATION
     Route: 065
     Dates: start: 20161229, end: 20170123
  12. STILNOX [Concomitant]
     Active Substance: ZOLPIDEM TARTRATE
     Indication: PRODUCT USED FOR UNKNOWN INDICATION
     Route: 065
     Dates: start: 20161223
  13. CLAMOXYL [Suspect]
     Active Substance: AMOXICILLIN\CLAVULANIC ACID
     Indication: OSTEITIS
     Route: 048
     Dates: start: 20170209, end: 20170302

REACTIONS (6)
  - Pyrexia [Recovering/Resolving]
  - Eosinophilia [Recovering/Resolving]
  - Drug reaction with eosinophilia and systemic symptoms [Recovering/Resolving]
  - Rash maculo-papular [Recovering/Resolving]
  - Rash [Recovering/Resolving]
  - Hyperthermia [Recovering/Resolving]

NARRATIVE: CASE EVENT DATE: 20170302
